FAERS Safety Report 24117275 (Version 1)
Quarter: 2024Q3

REPORT INFORMATION
  Report Type: Report from Study
  Country: US (occurrence: None)
  Receive Date: 20240722
  Receipt Date: 20240722
  Transmission Date: 20241017
  Serious: Yes (Other)
  Sender: ASTRAZENECA
  Company Number: 2022A011185

PATIENT
  Sex: Female

DRUGS (2)
  1. LYNPARZA [Suspect]
     Active Substance: OLAPARIB
     Dosage: 2 TABLETS TWICE DAILY
     Route: 048
  2. LYNPARZA [Suspect]
     Active Substance: OLAPARIB
     Dosage: 2 TABLETS EVERY MORNING AND 1 TABLET EVERY EVENING DUE TO MYELOSUPPRESSION.
     Route: 048

REACTIONS (1)
  - Myelosuppression [Unknown]
